FAERS Safety Report 4901137-0 (Version None)
Quarter: 2006Q1

REPORT INFORMATION
  Report Type: 
  Country: None (occurrence: None)
  Receive Date: 20060201
  Receipt Date: 20060120
  Transmission Date: 20060701
  Serious: Yes (Hospitalization)
  Sender: FDA-Public Use
  Company Number: US-2006-001113

PATIENT
  Age: 37 Year
  Sex: Female

DRUGS (2)
  1. BETASERON [Suspect]
     Indication: MULTIPLE SCLEROSIS
     Dosage: SUBCUTANEOUS
     Route: 058
     Dates: start: 19980908, end: 20011101
  2. BETASERON [Suspect]
     Indication: MULTIPLE SCLEROSIS
     Dosage: SUBCUTANEOUS
     Route: 058
     Dates: start: 20050721, end: 20051120

REACTIONS (2)
  - HEADACHE [None]
  - VAGINAL HAEMORRHAGE [None]
